FAERS Safety Report 8112695-X (Version None)
Quarter: 2012Q1

REPORT INFORMATION
  Report Type: 
  Country: None (occurrence: None)
  Receive Date: 20120203
  Receipt Date: 20120130
  Transmission Date: 20120608
  Serious: No
  Sender: FDA-Public Use
  Company Number: US-PFIZER INC-2012025970

PATIENT
  Sex: Female

DRUGS (3)
  1. NAPROXEN [Interacting]
     Dosage: UNK
  2. NEURONTIN [Suspect]
     Dosage: 100 MG
  3. NEURONTIN [Interacting]
     Dosage: 200 MG

REACTIONS (2)
  - DRUG INTERACTION [None]
  - HEADACHE [None]
